FAERS Safety Report 8820625 (Version 1)
Quarter: 2012Q4

REPORT INFORMATION
  Report Type: 
  Country: US (occurrence: US)
  Receive Date: 20121002
  Receipt Date: 20121002
  Transmission Date: 20130627
  Serious: Yes (Other)
  Sender: FDA-Public Use
  Company Number: US-JNJFOC-20120912232

PATIENT
  Age: 63 Year
  Sex: Male

DRUGS (3)
  1. XARELTO [Suspect]
     Indication: THROMBOSIS PROPHYLAXIS
     Dosage: taken for 28 days
     Route: 048
     Dates: start: 2012
  2. XARELTO [Suspect]
     Indication: HIP SURGERY
     Dosage: taken for 28 days
     Route: 048
     Dates: start: 2012
  3. ASPIRIN [Concomitant]
     Indication: ATRIAL FIBRILLATION

REACTIONS (1)
  - Pulmonary embolism [Recovered/Resolved]
